FAERS Safety Report 7367840-0 (Version None)
Quarter: 2011Q1

REPORT INFORMATION
  Report Type: 
  Country: None (occurrence: None)
  Receive Date: 20110322
  Receipt Date: 20110316
  Transmission Date: 20110831
  Serious: Yes (Hospitalization)
  Sender: FDA-Public Use
  Company Number: JP-PFIZER INC-2010179565

PATIENT
  Age: 88 Year
  Sex: Female
  Weight: 38.4 kg

DRUGS (10)
  1. RISEDRONATE SODIUM [Concomitant]
     Indication: OSTEOPOROSIS
     Dosage: UNK
     Route: 048
  2. GASTER [Suspect]
     Indication: REFLUX OESOPHAGITIS
     Dosage: 20 MG, 1X/DAY
     Route: 048
     Dates: start: 20100917, end: 20101220
  3. MAINTATE [Concomitant]
     Indication: HYPERTENSION
     Dosage: UNK
     Route: 048
     Dates: start: 20101118
  4. THYRADIN S [Concomitant]
     Indication: HYPOTHYROIDISM
     Dosage: UNK
     Route: 048
  5. PLETAL [Suspect]
     Indication: LACUNAR INFARCTION
     Dosage: 100 MG, 2X/DAY
     Route: 048
     Dates: start: 20100917, end: 20101220
  6. SENEVACUL [Concomitant]
     Indication: CONSTIPATION
     Dosage: UNK
     Route: 048
  7. SELBEX [Concomitant]
     Indication: REFLUX OESOPHAGITIS
     Dosage: UNK
     Route: 048
  8. GASTER [Suspect]
     Indication: GASTRITIS
  9. LIPITOR [Suspect]
     Indication: HYPERCHOLESTEROLAEMIA
     Dosage: 10 MG, 1X/DAY
     Route: 048
     Dates: start: 20100917, end: 20101220
  10. PREDONINE [Concomitant]
     Indication: ANTI-NEUTROPHIL CYTOPLASMIC ANTIBODY POSITIVE VASCULITIS
     Dosage: 5 MG, 1X/DAY
     Route: 048
     Dates: start: 20091007

REACTIONS (1)
  - HEPATIC FUNCTION ABNORMAL [None]
